FAERS Safety Report 14348810 (Version 1)
Quarter: 2018Q1

REPORT INFORMATION
  Report Type: Spontaneous
  Country: US (occurrence: US)
  Receive Date: 20180104
  Receipt Date: 20180104
  Transmission Date: 20180509
  Serious: Yes (Other)
  Sender: FDA-Public Use
  Company Number: US-009507513-1712JPN012853

PATIENT
  Age: 14 Year
  Sex: Male

DRUGS (2)
  1. PROVENTIL [Suspect]
     Active Substance: ALBUTEROL
     Indication: ASTHMA
     Dosage: UP TO 25 TIMES DAILY
     Route: 055
  2. FLUTICASONE. [Concomitant]
     Active Substance: FLUTICASONE
     Indication: ASTHMA
     Dosage: 200 MG, TID

REACTIONS (5)
  - Hyperreflexia [Recovering/Resolving]
  - Dysmetria [Recovering/Resolving]
  - Hypertension [Recovering/Resolving]
  - Tachycardia [Recovering/Resolving]
  - Product use issue [Unknown]
